FAERS Safety Report 25979434 (Version 1)
Quarter: 2025Q4

REPORT INFORMATION
  Report Type: Spontaneous
  Country: EU (occurrence: EU)
  Receive Date: 20251030
  Receipt Date: 20251030
  Transmission Date: 20260118
  Serious: Yes (Other)
  Sender: TEVA
  Company Number: EU-SANDOZ-SDZ2025DE071298

PATIENT
  Age: 41 Year
  Sex: Female

DRUGS (3)
  1. LETROZOLE [Suspect]
     Active Substance: LETROZOLE
     Indication: Adjuvant therapy
     Dosage: UNK
     Route: 065
     Dates: start: 201511, end: 201707
  2. DOCETAXEL [Concomitant]
     Active Substance: DOCETAXEL
     Indication: Adjuvant therapy
     Dosage: UNK; 4 CYCLES (75 MG/M? KOF) D1
     Route: 065
  3. CYCLOPHOSPHAMIDE [Concomitant]
     Active Substance: CYCLOPHOSPHAMIDE
     Indication: Product used for unknown indication
     Dosage: UNK; (600 MG/M? KOF) D1, Q21D
     Route: 065

REACTIONS (2)
  - Metastases to soft tissue [Unknown]
  - Breast cancer metastatic [Unknown]

NARRATIVE: CASE EVENT DATE: 20170701
